FAERS Safety Report 12760479 (Version 6)
Quarter: 2017Q2

REPORT INFORMATION
  Report Type: Report from Study
  Country: US (occurrence: US)
  Receive Date: 20160919
  Receipt Date: 20170630
  Transmission Date: 20170830
  Serious: Yes (Hospitalization)
  Sender: FDA-Public Use
  Company Number: US-ACTELION-A-US2016-142331

PATIENT
  Age: 71 Year
  Sex: Male
  Weight: 61.22 kg

DRUGS (12)
  1. LISINOPRIL. [Concomitant]
     Active Substance: LISINOPRIL
  2. PANTOPRAZOLE [Concomitant]
     Active Substance: PANTOPRAZOLE
     Dosage: 40 MG, BID
  3. OPSUMIT [Suspect]
     Active Substance: MACITENTAN
     Indication: PULMONARY HYPERTENSION
     Dosage: 10 MG, QD
     Route: 048
     Dates: start: 201504
  4. CLOPIDOGREL [Suspect]
     Active Substance: CLOPIDOGREL BISULFATE
     Indication: PRODUCT USED FOR UNKNOWN INDICATION
     Dosage: 75 MG, UNK
     Route: 048
  5. ATORVASTATIN [Concomitant]
     Active Substance: ATORVASTATIN
     Dosage: 40 MG, QPM
  6. WARFARIN [Suspect]
     Active Substance: WARFARIN
     Indication: PRODUCT USED FOR UNKNOWN INDICATION
     Dosage: 2.5 MG, QPM
     Route: 048
  7. ASPIRIN. [Suspect]
     Active Substance: ASPIRIN
     Indication: PRODUCT USED FOR UNKNOWN INDICATION
     Dosage: 81 MG, UNK
     Route: 048
  8. ALBUTEROL. [Concomitant]
     Active Substance: ALBUTEROL
  9. TIOTROPIUM [Concomitant]
     Active Substance: TIOTROPIUM
  10. BUDESONIDE. [Concomitant]
     Active Substance: BUDESONIDE
  11. FUROSEMIDE. [Concomitant]
     Active Substance: FUROSEMIDE
     Dosage: 40 MG, QD
  12. METOPROLOL. [Concomitant]
     Active Substance: METOPROLOL

REACTIONS (12)
  - Laceration [Unknown]
  - Incision site haemorrhage [Unknown]
  - Pneumonia [Unknown]
  - Epistaxis [Unknown]
  - Packed red blood cell transfusion [Unknown]
  - Dizziness postural [Unknown]
  - Gastrointestinal haemorrhage [Unknown]
  - Atrial septal defect repair [Unknown]
  - Anaemia [Unknown]
  - Haemoglobin decreased [Unknown]
  - Abnormal faeces [Unknown]
  - Fall [Unknown]

NARRATIVE: CASE EVENT DATE: 20151029
